FAERS Safety Report 14440578 (Version 2)
Quarter: 2018Q1

REPORT INFORMATION
  Report Type: Spontaneous
  Country: FR (occurrence: FR)
  Receive Date: 20180125
  Receipt Date: 20180319
  Transmission Date: 20180509
  Serious: Yes (Death)
  Sender: FDA-Public Use
  Company Number: FR-MYLANLABS-2018M1005143

PATIENT
  Age: 72 Year
  Sex: Female

DRUGS (5)
  1. CARBOPLATIN. [Suspect]
     Active Substance: CARBOPLATIN
     Indication: INVASIVE DUCTAL BREAST CARCINOMA
     Dosage: 669.25 MG, UNK
     Route: 042
  2. HERCEPTIN [Suspect]
     Active Substance: TRASTUZUMAB
     Indication: INVASIVE DUCTAL BREAST CARCINOMA
     Dosage: 536 MG, UNK
     Route: 042
  3. AUGMENTIN [Concomitant]
     Active Substance: AMOXICILLIN\CLAVULANATE POTASSIUM
     Indication: SUBCUTANEOUS ABSCESS
     Dosage: 3 G, UNK
     Route: 042
  4. DOCETAXEL. [Suspect]
     Active Substance: DOCETAXEL
     Indication: INVASIVE DUCTAL BREAST CARCINOMA
     Dosage: 125.25 MG, UNK
     Route: 041
  5. OFLOCET [Concomitant]
     Active Substance: OFLOXACIN
     Indication: SUBCUTANEOUS ABSCESS
     Dosage: 400 MG, UNK
     Route: 048

REACTIONS (3)
  - Clostridium difficile colitis [Fatal]
  - Colitis ischaemic [Fatal]
  - Septic shock [Fatal]

NARRATIVE: CASE EVENT DATE: 20171223
